FAERS Safety Report 11077653 (Version 1)
Quarter: 2015Q2

REPORT INFORMATION
  Report Type: Spontaneous
  Country: US (occurrence: US)
  Receive Date: 20150430
  Receipt Date: 20150430
  Transmission Date: 20150821
  Serious: Yes (Hospitalization)
  Sender: FDA-Public Use
  Company Number: US-ABBVIE-15K-163-1381699-00

PATIENT
  Age: 50 Year
  Sex: Female
  Weight: 75.36 kg

DRUGS (3)
  1. PENTASA [Concomitant]
     Active Substance: MESALAMINE
     Indication: PRODUCT USED FOR UNKNOWN INDICATION
  2. CYMBALTA [Concomitant]
     Active Substance: DULOXETINE HYDROCHLORIDE
     Indication: PRODUCT USED FOR UNKNOWN INDICATION
  3. HUMIRA [Suspect]
     Active Substance: ADALIMUMAB
     Indication: CROHN^S DISEASE
     Route: 065

REACTIONS (6)
  - Abdominal pain upper [Unknown]
  - Pancreatitis [Recovering/Resolving]
  - Urinary tract infection [Unknown]
  - Spinal osteoarthritis [Not Recovered/Not Resolved]
  - Lipase increased [Unknown]
  - Chest pain [Unknown]

NARRATIVE: CASE EVENT DATE: 20150423
